FAERS Safety Report 23250371 (Version 2)
Quarter: 2023Q4

REPORT INFORMATION
  Report Type: Spontaneous
  Country: US (occurrence: US)
  Receive Date: 20231201
  Receipt Date: 20231229
  Transmission Date: 20240109
  Serious: No
  Sender: FDA-Public Use
  Company Number: US-PFIZER INC-202300414232

PATIENT
  Age: 45 Year
  Sex: Female

DRUGS (1)
  1. RITUXIMAB [Suspect]
     Active Substance: RITUXIMAB
     Dosage: 1000 MG (DAY 1 AND DAY 15 EVERY 6 MONTHS)
     Route: 042

REACTIONS (2)
  - Vasculitis [Unknown]
  - Off label use [Unknown]
